FAERS Safety Report 15496326 (Version 1)
Quarter: 2018Q4

REPORT INFORMATION
  Report Type: Spontaneous
  Country: US (occurrence: US)
  Receive Date: 20181012
  Receipt Date: 20181012
  Transmission Date: 20190205
  Serious: Yes (Hospitalization)
  Sender: FDA-Public Use
  Company Number: US-B.I. PHARMACEUTICALS,INC./RIDGEFIELD-2018-BI-049787

PATIENT
  Age: 62 Year
  Sex: Male

DRUGS (1)
  1. SPIRIVA RESPIMAT [Suspect]
     Active Substance: TIOTROPIUM BROMIDE
     Indication: CHRONIC OBSTRUCTIVE PULMONARY DISEASE
     Dosage: FORMULATION: INHALATION SPRAY? ?ACTION(S) TAKEN WITH PRODUCT: NOT REPORTED
     Route: 055
     Dates: start: 201804

REACTIONS (3)
  - Dyspnoea [Unknown]
  - Pain [Unknown]
  - Allergy to plants [Unknown]

NARRATIVE: CASE EVENT DATE: 20181003
